FAERS Safety Report 23181442 (Version 1)
Quarter: 2023Q4

REPORT INFORMATION
  Report Type: Other
  Country: CA (occurrence: CA)
  Receive Date: 20231114
  Receipt Date: 20231114
  Transmission Date: 20240110
  Serious: Yes (Other)
  Sender: FDA-Public Use
  Company Number: CA-INTERCEPT-PM2022001337

PATIENT
  Sex: Female

DRUGS (6)
  1. OCALIVA [Suspect]
     Active Substance: OBETICHOLIC ACID
     Indication: Primary biliary cholangitis
     Dosage: 5 MG, QD
     Route: 048
     Dates: start: 20220411
  2. OCALIVA [Suspect]
     Active Substance: OBETICHOLIC ACID
     Dosage: 5 MG, QOD (1 TABLET OF 5MG ON ONE DAY AND 1 TABLET OF 10MG ON THE ALTERNATE DAY)
     Route: 048
     Dates: start: 202308
  3. OCALIVA [Suspect]
     Active Substance: OBETICHOLIC ACID
     Dosage: 10 MG, QOD (1 TABLET OF 5MG ON ONE DAY AND 1 TABLET OF 10MG ON THE ALTERNATE DAY)
     Route: 048
     Dates: start: 202308
  4. OCALIVA [Suspect]
     Active Substance: OBETICHOLIC ACID
     Dosage: 10 MG, QD
     Route: 048
     Dates: start: 202309
  5. URSODIOL [Concomitant]
     Active Substance: URSODIOL
     Dosage: 250 MG, QD (RE-STARTED THE UDCA AT A LOW DOSE)
  6. MYCOPHENOLATE MOFETIL [Concomitant]
     Active Substance: MYCOPHENOLATE MOFETIL
     Dosage: 1000 MG, BID (MORNING AND EVENING)

REACTIONS (3)
  - Hepatitis [Not Recovered/Not Resolved]
  - Nervousness [Recovered/Resolved]
  - Pruritus [Not Recovered/Not Resolved]

NARRATIVE: CASE EVENT DATE: 20220101
